FAERS Safety Report 8045114-2 (Version None)
Quarter: 2012Q1

REPORT INFORMATION
  Report Type: 
  Country: None (occurrence: None)
  Receive Date: 20120113
  Receipt Date: 20110520
  Transmission Date: 20120608
  Serious: Yes (Death, Other)
  Sender: FDA-Public Use
  Company Number: DE-ROCHE-1029001

PATIENT

DRUGS (2)
  1. AVASTIN [Suspect]
     Indication: BREAST CANCER METASTATIC
     Route: 065
  2. PACLITAXEL [Suspect]
     Indication: BREAST CANCER METASTATIC
     Route: 065

REACTIONS (8)
  - PERIPHERAL SENSORY NEUROPATHY [None]
  - EMBOLISM [None]
  - INFECTION [None]
  - THROMBOSIS [None]
  - GASTROINTESTINAL PERFORATION [None]
  - PROTEINURIA [None]
  - PAIN [None]
  - HYPERTENSION [None]
